FAERS Safety Report 5056226-X (Version None)
Quarter: 2006Q2

REPORT INFORMATION
  Report Type: 
  Country: None (occurrence: None)
  Receive Date: 20060616
  Receipt Date: 20060308
  Transmission Date: 20061013
  Serious: Yes (Hospitalization)
  Sender: FDA-Public Use
  Company Number: 200610013US

PATIENT
  Age: 75 Year
  Sex: Male
  Weight: 86.4 kg

DRUGS (9)
  1. LANTUS [Suspect]
     Indication: DIABETES MELLITUS NON-INSULIN-DEPENDENT
     Dosage: 34 U QAM
  2. LANTUS [Suspect]
     Indication: DIABETES MELLITUS NON-INSULIN-DEPENDENT
     Dosage: 6 U HS
  3. PHENYTOIN SODIUM [Concomitant]
  4. SIMVASTATIN [Concomitant]
  5. SYNTHROID [Concomitant]
  6. FLUTICASONE PROPIONATE (FLONASE) [Concomitant]
  7. ALTACE [Concomitant]
  8. ACETYLSALICYLIC ACID SRT [Concomitant]
  9. INSULIN HUMAN (HUMULIN R) [Concomitant]

REACTIONS (2)
  - HYPERGLYCAEMIA [None]
  - PAIN IN EXTREMITY [None]
